FAERS Safety Report 10203024 (Version 1)
Quarter: 2014Q2

REPORT INFORMATION
  Report Type: Report from Study
  Country: US (occurrence: US)
  Receive Date: 20140528
  Receipt Date: 20140528
  Transmission Date: 20141212
  Serious: Yes (Hospitalization)
  Sender: FDA-Public Use
  Company Number: US-BRISTOL-MYERS SQUIBB COMPANY-20811089

PATIENT
  Age: 67 Year
  Sex: Female
  Weight: 47.9 kg

DRUGS (9)
  1. CETUXIMAB [Suspect]
     Indication: HEAD AND NECK CANCER
     Dates: start: 20140407
  2. CLINDAMYCIN [Concomitant]
  3. CYCLOSPORINE [Concomitant]
  4. DOCUSATE SODIUM [Concomitant]
  5. LIDOCAINE [Concomitant]
  6. LISINOPRIL [Concomitant]
  7. METFORMIN [Concomitant]
  8. OXYCODONE [Concomitant]
  9. POLYETHYLENE GLYCOL [Concomitant]

REACTIONS (3)
  - Hypoxia [Not Recovered/Not Resolved]
  - Sinus tachycardia [Not Recovered/Not Resolved]
  - Dehydration [Not Recovered/Not Resolved]
